FAERS Safety Report 5602959-3 (Version None)
Quarter: 2008Q1

REPORT INFORMATION
  Report Type: 
  Country: None (occurrence: None)
  Receive Date: 20080111
  Receipt Date: 20071105
  Transmission Date: 20080703
  Serious: Yes (Other)
  Sender: FDA-Public Use
  Company Number: HQWYE241219JUL04

PATIENT
  Sex: Female

DRUGS (5)
  1. PREMPRO [Suspect]
     Indication: HORMONE REPLACEMENT THERAPY
  2. MEDROXYPROGESTERONED ACETATE (MEDROXYPROGESTERONE ACETATE) [Suspect]
  3. PREMARIN [Suspect]
  4. PROVERA [Suspect]
  5. ESTROGENIC SUBSTANCE CAP [Suspect]

REACTIONS (1)
  - BREAST CANCER [None]
